FAERS Safety Report 9019266 (Version 1)
Quarter: 2013Q1

REPORT INFORMATION
  Report Type: Spontaneous
  Country: CA (occurrence: CA)
  Receive Date: 20130118
  Receipt Date: 20130118
  Transmission Date: 20140127
  Serious: Yes (Hospitalization, Disabling)
  Sender: FDA-Public Use
  Company Number: CA-ELI_LILLY_AND_COMPANY-CA201210000356

PATIENT
  Age: 72 Year
  Sex: Female
  Weight: 74.83 kg

DRUGS (22)
  1. FORTEO [Suspect]
     Indication: OSTEOPOROSIS
     Dosage: 20 UG, QD
     Route: 058
     Dates: start: 20120321
  2. RHO-NITRO [Concomitant]
  3. ERYTHROMYCIN [Concomitant]
     Dosage: 0.5 %, UNK
  4. METOPROLOL [Concomitant]
  5. LORAZEPAM [Concomitant]
  6. MAGNESIUM [Concomitant]
  7. NOVOLIN NPH [Concomitant]
  8. LESCOL [Concomitant]
  9. RAMIPRIL [Concomitant]
  10. ACETAMINOPHEN [Concomitant]
  11. GABAPENTIN [Concomitant]
  12. PAROXETINE [Concomitant]
  13. PANTOPRAZOLE [Concomitant]
  14. METFORMIN [Concomitant]
  15. VITAMIN B12 [Concomitant]
  16. LASIX [Concomitant]
  17. DOCUSATE SODIUM [Concomitant]
  18. AMLODIPINE [Concomitant]
  19. COUMADIN [Concomitant]
     Dosage: UNK
     Dates: end: 20120813
  20. CALCIUM [Concomitant]
  21. D-TABS [Concomitant]
  22. RIVASA [Concomitant]

REACTIONS (4)
  - Staphylococcal skin infection [Not Recovered/Not Resolved]
  - Necrosis [Unknown]
  - Pollakiuria [Not Recovered/Not Resolved]
  - Nausea [Not Recovered/Not Resolved]
